FAERS Safety Report 8470269-5 (Version None)
Quarter: 2012Q2

REPORT INFORMATION
  Report Type: 
  Country: None (occurrence: None)
  Receive Date: 20120627
  Receipt Date: 20120618
  Transmission Date: 20120825
  Serious: Yes (Hospitalization)
  Sender: FDA-Public Use
  Company Number: CA-JNJFOC-20120608738

PATIENT
  Sex: Male
  Weight: 58.97 kg

DRUGS (2)
  1. HYDROMORPHONE HCL [Concomitant]
     Route: 065
  2. REMICADE [Suspect]
     Indication: CROHN'S DISEASE
     Route: 042
     Dates: start: 20111101

REACTIONS (4)
  - INTESTINAL RESECTION [None]
  - ABSCESS [None]
  - CYSTITIS [None]
  - ABDOMINAL PAIN UPPER [None]
